FAERS Safety Report 10219750 (Version 1)
Quarter: 2014Q2

REPORT INFORMATION
  Report Type: Report from Study
  Country: US (occurrence: US)
  Receive Date: 20140605
  Receipt Date: 20140605
  Transmission Date: 20141212
  Serious: Yes (Hospitalization, Other)
  Sender: FDA-Public Use
  Company Number: US-SA-2014SA070117

PATIENT
  Age: 67 Year
  Sex: Female

DRUGS (1)
  1. LANTUS SOLOSTAR [Suspect]
     Indication: DIABETES MELLITUS
     Dosage: DOSE:60 UNIT(S)
     Route: 065
     Dates: start: 2008

REACTIONS (9)
  - Coma [Unknown]
  - Gangrene [Unknown]
  - Amputation [Unknown]
  - Surgery [Unknown]
  - Cardiovascular disorder [Not Recovered/Not Resolved]
  - Parathyroid disorder [Unknown]
  - Confusional state [Unknown]
  - Personality change [Unknown]
  - Drug dose omission [Unknown]
